FAERS Safety Report 12746186 (Version 2)
Quarter: 2016Q4

REPORT INFORMATION
  Report Type: Spontaneous
  Country: US (occurrence: US)
  Receive Date: 20160915
  Receipt Date: 20161017
  Transmission Date: 20170207
  Serious: Yes (Other)
  Sender: FDA-Public Use
  Company Number: US-SA-2016SA166775

PATIENT
  Sex: Female

DRUGS (2)
  1. LANTUS SOLOSTAR [Suspect]
     Active Substance: INSULIN GLARGINE
     Indication: TYPE 2 DIABETES MELLITUS
     Dosage: DOSE:23 UNIT(S)
     Route: 065
     Dates: start: 201608
  2. SOLOSTAR [Concomitant]
     Active Substance: DEVICE
     Dates: start: 201608

REACTIONS (4)
  - Renal failure [Unknown]
  - Blood potassium abnormal [Unknown]
  - Skin disorder [Unknown]
  - Visual acuity reduced [Unknown]
